FAERS Safety Report 6766872-0 (Version None)
Quarter: 2010Q2

REPORT INFORMATION
  Report Type: 
  Country: None (occurrence: None)
  Receive Date: 20100611
  Receipt Date: 20100521
  Transmission Date: 20101027
  Serious: Yes (Hospitalization, Other)
  Sender: FDA-Public Use
  Company Number: PHEH2007US12077

PATIENT
  Sex: Female
  Weight: 74.83 kg

DRUGS (64)
  1. ZOMETA [Suspect]
     Indication: NEOPLASM MALIGNANT
     Dosage: 4 MG, QMO
     Dates: start: 20020725, end: 20071120
  2. ZOMETA [Suspect]
     Indication: METASTASES TO SPINE
  3. ZOMETA [Suspect]
     Indication: CALCIUM DEFICIENCY
  4. AROMASIN [Concomitant]
     Indication: LUNG NEOPLASM
     Dosage: 25 MG, QD
     Dates: start: 20000101
  5. LASIX [Concomitant]
  6. CARTIA                                  /USA/ [Concomitant]
  7. SPIRONOLACTONE [Concomitant]
  8. KLOR-CON [Concomitant]
     Dosage: 10 MEQ, QD
  9. AMBIEN [Concomitant]
     Dosage: 10 MG, PRN
  10. DARVOCET-N 100 [Concomitant]
     Dosage: UNK
  11. TAMOXIFEN [Concomitant]
  12. COZAAR [Concomitant]
     Dosage: 100 MG, QD
  13. LORTAB [Concomitant]
     Dosage: UNK
  14. ADVAIR DISKUS 100/50 [Concomitant]
     Dosage: UNK
  15. XANAX [Concomitant]
     Dosage: 0.5 MG, PRN
  16. CALTRATE +D [Concomitant]
     Dosage: UNK
  17. HYDROCHLOROTHIAZIDE [Concomitant]
     Dosage: 25 MG, QD
  18. CELEXA [Concomitant]
     Dosage: 40 MG, QD
  19. CRESTOR [Concomitant]
     Dosage: 110 MG, QD
  20. PROTEINASE INHIBITORS [Concomitant]
     Dosage: UNK
  21. IRON [Concomitant]
     Dosage: UNK
     Dates: start: 20010101
  22. SYNTHROID [Concomitant]
     Dosage: 0.125 MG, QD
  23. B12 ^RECIP^ [Concomitant]
     Dosage: UNK
  24. FLONASE [Concomitant]
  25. COUMADIN [Concomitant]
  26. K-DUR [Concomitant]
  27. RADIATION THERAPY [Concomitant]
  28. PROTONIX [Concomitant]
  29. ELAVIL [Concomitant]
  30. TIAZAC [Concomitant]
  31. MULTIPLE VITAMIN [Concomitant]
  32. NEXIUM [Concomitant]
  33. DILANTIN W/PHENOBARBITAL [Concomitant]
  34. INSULIN [Concomitant]
  35. ACIPHEX [Concomitant]
     Dosage: 20MG QD
     Route: 048
     Dates: start: 20080910
  36. MACROBID [Concomitant]
     Dosage: 100MG QD
     Dates: start: 20081106
  37. EFFEXOR [Concomitant]
     Dosage: 75MG QD
     Dates: start: 20081108
  38. ZETIA [Concomitant]
     Dosage: UNK
     Dates: start: 20081108
  39. MIRTAZAPINE [Concomitant]
     Dosage: 30MG HS
     Dates: start: 20071022
  40. KENALOG [Concomitant]
  41. ASTELIN [Concomitant]
  42. PERIDEX [Concomitant]
  43. AMITRIPTYLINE [Concomitant]
  44. ALPRAZOLAM [Concomitant]
  45. ALBUTEROL [Concomitant]
  46. CITRICAL [Concomitant]
  47. CENTRUM [Concomitant]
  48. FUROSEMIDE [Concomitant]
  49. VIOXX [Concomitant]
  50. REQUIP [Concomitant]
  51. FELDENE [Concomitant]
  52. ASPIRIN [Concomitant]
  53. BLOOD TRANSFUSION, AUXILIARY PRODUCTS [Concomitant]
  54. ZAROXOLYN [Concomitant]
  55. PROTONIX [Concomitant]
  56. ZYLOPRIM [Concomitant]
  57. CITALOPRAM [Concomitant]
  58. VITAMIN C AND E [Concomitant]
  59. LORCET-HD [Concomitant]
  60. MILK OF MAGNESIA TAB [Concomitant]
  61. ZOFRAN [Concomitant]
  62. PRAVASTATIN SODIUM [Concomitant]
  63. SYNVISC [Concomitant]
  64. PROPOXYPHENE HCL AND ACETAMINOPHEN [Concomitant]

REACTIONS (100)
  - ABASIA [None]
  - ABDOMINAL PAIN [None]
  - ACUTE SINUSITIS [None]
  - ALVEOLOPLASTY [None]
  - ANHEDONIA [None]
  - ANXIETY [None]
  - ARTHRALGIA [None]
  - ARTIFICIAL CROWN PROCEDURE [None]
  - ASTHENIA [None]
  - ATRIAL FIBRILLATION [None]
  - BACK PAIN [None]
  - BALANCE DISORDER [None]
  - BILE DUCT STENOSIS [None]
  - BLOOD CALCIUM INCREASED [None]
  - BONE DEBRIDEMENT [None]
  - BONE DISORDER [None]
  - BRAIN NEOPLASM [None]
  - CARDIAC FAILURE [None]
  - CENTRAL NERVOUS SYSTEM LESION [None]
  - CHRONIC OBSTRUCTIVE PULMONARY DISEASE [None]
  - COLITIS [None]
  - COLON POLYPECTOMY [None]
  - COLONIC POLYP [None]
  - CONSTIPATION [None]
  - CRANIOTOMY [None]
  - CYST [None]
  - DEFORMITY [None]
  - DENTAL FISTULA [None]
  - DEPRESSION [None]
  - DISCOMFORT [None]
  - DIVERTICULUM INTESTINAL [None]
  - DIZZINESS [None]
  - DRY MOUTH [None]
  - DYSPHAGIA [None]
  - DYSPNOEA [None]
  - EMOTIONAL DISTRESS [None]
  - ENDODONTIC PROCEDURE [None]
  - FATIGUE [None]
  - FOOT DEFORMITY [None]
  - GASTROOESOPHAGEAL REFLUX DISEASE [None]
  - GLUCOSE TOLERANCE IMPAIRED [None]
  - GOITRE [None]
  - HAEMORRHOIDS [None]
  - HEADACHE [None]
  - HEPATIC CYST [None]
  - HYPERGLYCAEMIA [None]
  - HYPERKERATOSIS [None]
  - HYPERLIPIDAEMIA [None]
  - HYPERTENSION [None]
  - HYPERTROPHIC CARDIOMYOPATHY [None]
  - HYPOCALCAEMIA [None]
  - HYPOGLYCAEMIA [None]
  - HYPOPHAGIA [None]
  - IMPLANTABLE DEFIBRILLATOR INSERTION [None]
  - INFECTION [None]
  - INJURY [None]
  - INTERVERTEBRAL DISC DEGENERATION [None]
  - JOINT SWELLING [None]
  - KNEE ARTHROPLASTY [None]
  - LARYNGEAL OEDEMA [None]
  - MITRAL VALVE INCOMPETENCE [None]
  - MOUTH ULCERATION [None]
  - MUSCULOSKELETAL DISCOMFORT [None]
  - MUSCULOSKELETAL PAIN [None]
  - MYOMECTOMY [None]
  - MYOPATHY [None]
  - NEUROPATHY PERIPHERAL [None]
  - OSTECTOMY [None]
  - OSTEOARTHRITIS [None]
  - OSTEONECROSIS [None]
  - OSTEONECROSIS OF JAW [None]
  - OSTEOSCLEROSIS [None]
  - OTORRHOEA [None]
  - PAIN [None]
  - PAIN IN JAW [None]
  - PARANASAL SINUS HYPERSECRETION [None]
  - PNEUMONIA [None]
  - PRIMARY SEQUESTRUM [None]
  - PURULENT DISCHARGE [None]
  - RADICULOPATHY [None]
  - RESTLESS LEGS SYNDROME [None]
  - RHINITIS ALLERGIC [None]
  - SCOLIOSIS [None]
  - SHOULDER ARTHROPLASTY [None]
  - SPINAL COLUMN STENOSIS [None]
  - SPINAL OSTEOARTHRITIS [None]
  - STERNOTOMY [None]
  - STOMATITIS [None]
  - STOMATITIS NECROTISING [None]
  - SWELLING [None]
  - SYNCOPE [None]
  - TENDERNESS [None]
  - THYROID CANCER [None]
  - THYROIDECTOMY [None]
  - TOOTH EXTRACTION [None]
  - TOOTH FRACTURE [None]
  - TOOTH LOSS [None]
  - TOOTH REPAIR [None]
  - VENTRICULAR SEPTAL DEFECT REPAIR [None]
  - VIRAL INFECTION [None]
